FAERS Safety Report 12896641 (Version 1)
Quarter: 2016Q4

REPORT INFORMATION
  Report Type: Spontaneous
  Country: US (occurrence: US)
  Receive Date: 20161028
  Receipt Date: 20161028
  Transmission Date: 20170207
  Serious: No
  Sender: FDA-Public Use
  Company Number: None

PATIENT

DRUGS (1)
  1. HEPARIN SODIUM INJECTION [Suspect]
     Active Substance: HEPARIN SODIUM
     Dates: start: 20161001, end: 20161028

REACTIONS (2)
  - Product measured potency issue [None]
  - Drug effect decreased [None]

NARRATIVE: CASE EVENT DATE: 20161028
